FAERS Safety Report 5012028-1 (Version None)
Quarter: 2006Q2

REPORT INFORMATION
  Report Type: 
  Country: None (occurrence: None)
  Receive Date: 20060526
  Receipt Date: 20060207
  Transmission Date: 20061013
  Serious: Yes (Other)
  Sender: FDA-Public Use
  Company Number: US-GLAXOSMITHKLINE-A0592689A

PATIENT
  Age: 50 Year
  Sex: Female

DRUGS (2)
  1. PAROXETINE [Suspect]
     Dosage: 30MG PER DAY
     Route: 048
     Dates: start: 20051101, end: 20060116
  2. PAXIL CR [Suspect]
     Indication: ANXIETY
     Route: 048
     Dates: start: 20060101

REACTIONS (5)
  - CRYING [None]
  - DRUG INEFFECTIVE [None]
  - MOOD SWINGS [None]
  - PANIC ATTACK [None]
  - SUICIDAL IDEATION [None]
